FAERS Safety Report 14435569 (Version 1)
Quarter: 2018Q1

REPORT INFORMATION
  Report Type: Spontaneous
  Country: US (occurrence: US)
  Receive Date: 20180124
  Receipt Date: 20180124
  Transmission Date: 20180509
  Serious: No
  Sender: FDA-Public Use
  Company Number: None

PATIENT
  Age: 52 Year
  Sex: Female

DRUGS (1)
  1. BOTOX [Suspect]
     Active Substance: ONABOTULINUMTOXINA
     Dosage: 200 UNITS Q12WKS IM
     Route: 030
     Dates: start: 20170518

REACTIONS (2)
  - Alopecia [None]
  - Injection site reaction [None]

NARRATIVE: CASE EVENT DATE: 20180124
